FAERS Safety Report 5031455-X (Version None)
Quarter: 2006Q2

REPORT INFORMATION
  Report Type: 
  Country: None (occurrence: None)
  Receive Date: 20060616
  Receipt Date: 20060604
  Transmission Date: 20061013
  Serious: Yes (Disabling, Other)
  Sender: FDA-Public Use
  Company Number: S06-HRV-02168-01

PATIENT
  Age: 47 Year
  Sex: Male
  Weight: 74 kg

DRUGS (4)
  1. ESCITALOPRAM OXALATE [Suspect]
     Indication: POST-TRAUMATIC STRESS DISORDER
     Dosage: 10 MG QD PO
     Route: 048
     Dates: start: 20050318, end: 20050610
  2. ESCITALOPRAM OXALATE [Suspect]
     Indication: POST-TRAUMATIC STRESS DISORDER
     Dosage: 5 MG PO
     Route: 048
     Dates: start: 20050611
  3. OXAZEPAM [Concomitant]
  4. CERSON (NITRAZEPAM) [Concomitant]

REACTIONS (8)
  - AKATHISIA [None]
  - ANXIETY [None]
  - GASTRIC DISORDER [None]
  - HEADACHE [None]
  - INSOMNIA [None]
  - RESTLESS LEGS SYNDROME [None]
  - TENSION [None]
  - TREMOR [None]
